FAERS Safety Report 21533815 (Version 2)
Quarter: 2023Q2

REPORT INFORMATION
  Report Type: Report from Study
  Country: US (occurrence: US)
  Receive Date: 20221101
  Receipt Date: 20230406
  Transmission Date: 20230721
  Serious: No
  Sender: FDA-Public Use
  Company Number: US-ABBVIE-22K-163-4426652-00

PATIENT
  Age: 49 Year
  Sex: Female

DRUGS (8)
  1. HUMIRA [Suspect]
     Active Substance: ADALIMUMAB
     Indication: Ankylosing spondylitis
     Dosage: CITRATE FREE
     Route: 058
     Dates: start: 20220117, end: 20220728
  2. HUMIRA [Suspect]
     Active Substance: ADALIMUMAB
     Indication: Psoriasis
     Route: 058
  3. HUMIRA [Suspect]
     Active Substance: ADALIMUMAB
     Indication: Colitis ulcerative
  4. HUMIRA [Suspect]
     Active Substance: ADALIMUMAB
     Indication: Rheumatoid arthritis
  5. PFIZER-BIONTECH COVID-19 VACCINE [Concomitant]
     Active Substance: TOZINAMERAN
     Indication: COVID-19 immunisation
     Dosage: TIME INTERVAL: 1 TOTAL: FIRST DOSE
     Route: 030
     Dates: start: 2021, end: 2021
  6. PFIZER-BIONTECH COVID-19 VACCINE [Concomitant]
     Active Substance: TOZINAMERAN
     Indication: COVID-19 immunisation
     Dosage: TIME INTERVAL: 1 TOTAL: SECOND DOSE
     Route: 030
     Dates: start: 2021, end: 2021
  7. PFIZER-BIONTECH COVID-19 VACCINE [Concomitant]
     Active Substance: TOZINAMERAN
     Indication: COVID-19 immunisation
     Dosage: TIME INTERVAL: 1 TOTAL: BOOSTER DOSE
     Route: 030
  8. MELOXICAM [Suspect]
     Active Substance: MELOXICAM
     Indication: Ankylosing spondylitis
     Route: 048

REACTIONS (15)
  - Constipation [Not Recovered/Not Resolved]
  - Joint effusion [Recovering/Resolving]
  - Joint injury [Unknown]
  - Musculoskeletal chest pain [Not Recovered/Not Resolved]
  - Condition aggravated [Not Recovered/Not Resolved]
  - Skin exfoliation [Recovered/Resolved]
  - Blister [Recovered/Resolved]
  - Psoriasis [Recovered/Resolved]
  - Diarrhoea [Not Recovered/Not Resolved]
  - Fall [Unknown]
  - COVID-19 [Recovered/Resolved]
  - Pain [Unknown]
  - Drug ineffective [Unknown]
  - Spinal pain [Recovering/Resolving]
  - Back pain [Recovering/Resolving]

NARRATIVE: CASE EVENT DATE: 20220512
